FAERS Safety Report 7354031-2 (Version None)
Quarter: 2011Q1

REPORT INFORMATION
  Report Type: 
  Country: None (occurrence: None)
  Receive Date: 20110315
  Receipt Date: 20110308
  Transmission Date: 20110831
  Serious: Yes (Other)
  Sender: FDA-Public Use
  Company Number: US-US-EMD SERONO, INC.-7004714

PATIENT
  Sex: Female

DRUGS (4)
  1. ANTIDEPRESSANT [Concomitant]
     Indication: DEPRESSION
  2. REBIF [Suspect]
     Route: 058
     Dates: end: 20100701
  3. BACLOFEN [Concomitant]
  4. REBIF [Suspect]
     Indication: MULTIPLE SCLEROSIS
     Route: 058
     Dates: start: 20060626

REACTIONS (8)
  - TINNITUS [None]
  - FEELING HOT [None]
  - MUSCULAR WEAKNESS [None]
  - NECK PAIN [None]
  - DEPRESSION [None]
  - HEADACHE [None]
  - SUICIDAL BEHAVIOUR [None]
  - HYPERTENSION [None]
